FAERS Safety Report 5947849-1 (Version None)
Quarter: 2008Q4

REPORT INFORMATION
  Report Type: 
  Country: None (occurrence: None)
  Receive Date: 20081107
  Receipt Date: 20081023
  Transmission Date: 20090506
  Serious: Yes (Death)
  Sender: FDA-Public Use
  Company Number: 2008S1019490

PATIENT
  Age: 23 Year
  Sex: Female

DRUGS (2)
  1. ACEBUTOLOL [Suspect]
     Dosage: ; ORAL
     Route: 048
  2. NIFEDIPINE [Suspect]
     Dosage: ; ORAL
     Route: 048

REACTIONS (3)
  - CARDIO-RESPIRATORY ARREST [None]
  - COMPLETED SUICIDE [None]
  - DRUG TOXICITY [None]
